FAERS Safety Report 14755781 (Version 2)
Quarter: 2018Q2

REPORT INFORMATION
  Report Type: Spontaneous
  Country: US (occurrence: US)
  Receive Date: 20180413
  Receipt Date: 20180510
  Transmission Date: 20180711
  Serious: No
  Sender: FDA-Public Use
  Company Number: US-PFIZER INC-2015172133

PATIENT
  Age: 63 Year
  Sex: Female
  Weight: 86.18 kg

DRUGS (14)
  1. VIAGRA [Suspect]
     Active Substance: SILDENAFIL CITRATE
     Indication: ONYCHOMADESIS
     Dosage: 15 MG, UNK
  2. VIAGRA [Suspect]
     Active Substance: SILDENAFIL CITRATE
     Indication: SCLERODERMA
  3. NEXIUM [Concomitant]
     Active Substance: ESOMEPRAZOLE MAGNESIUM
     Indication: DYSPEPSIA
     Dosage: 22.3 MG, 2X/DAY
     Dates: start: 201709
  4. IMPRAMINE [Concomitant]
     Active Substance: IMIPRAMINE
     Indication: URINARY INCONTINENCE
     Dosage: 25 MG, 1X/DAY (ONCE DAILY)
  5. SIMVASTATIN. [Concomitant]
     Active Substance: SIMVASTATIN
     Indication: BLOOD CHOLESTEROL ABNORMAL
     Dosage: 20 MG, 1X/DAY (ONCE DAILY)
  6. VIAGRA [Suspect]
     Active Substance: SILDENAFIL CITRATE
     Indication: LACERATION
  7. NEXIUM [Concomitant]
     Active Substance: ESOMEPRAZOLE MAGNESIUM
     Indication: SCAR
  8. WOMEN^S MULTI [Concomitant]
     Indication: SUPPLEMENTATION THERAPY
     Dosage: UNK UNK, 1X/DAY
  9. SERTRALINE [Concomitant]
     Active Substance: SERTRALINE HYDROCHLORIDE
     Indication: NEURALGIA
     Dosage: 50 MG, 1X/DAY (ONCE DAILY)
  10. MELOXICAM. [Concomitant]
     Active Substance: MELOXICAM
     Indication: ARTHRITIS
     Dosage: 15 MG, 1X/DAY (ONCE DAILY)
  11. TRAMADOL. [Concomitant]
     Active Substance: TRAMADOL
     Indication: ARTHRALGIA
     Dosage: 50 MG, UNK (EVERY 8 HOURS)
  12. VIAGRA [Suspect]
     Active Substance: SILDENAFIL CITRATE
     Indication: RAYNAUD^S PHENOMENON
     Dosage: 25 MG, 1X/DAY (ONE HALF 50MG TABLET ONCE DAILY)
     Route: 048
     Dates: start: 2015
  13. MYRBETRIQ [Concomitant]
     Active Substance: MIRABEGRON
     Indication: URINARY INCONTINENCE
     Dosage: UNK (LOWER DOSE)
  14. MYRBETRIQ [Concomitant]
     Active Substance: MIRABEGRON
     Dosage: 50 MG, 1X/DAY (ONCE DAILY) (YEAR AGO)

REACTIONS (3)
  - Body height decreased [Unknown]
  - Product use issue [Not Recovered/Not Resolved]
  - Product use in unapproved indication [Unknown]

NARRATIVE: CASE EVENT DATE: 2015
